FAERS Safety Report 7655267-3 (Version None)
Quarter: 2011Q3

REPORT INFORMATION
  Report Type: 
  Country: None (occurrence: None)
  Receive Date: 20110804
  Receipt Date: 20110801
  Transmission Date: 20111222
  Serious: Yes (Life-Threatening)
  Sender: FDA-Public Use
  Company Number: US-BAYER-2011-068087

PATIENT
  Age: 50 Year
  Sex: Female

DRUGS (1)
  1. AVELOX [Suspect]
     Indication: SINUSITIS
     Dosage: 40 MG, ONCE
     Route: 048
     Dates: start: 20110719, end: 20110719

REACTIONS (6)
  - LOSS OF CONSCIOUSNESS [None]
  - VOMITING [None]
  - ANAPHYLACTIC SHOCK [None]
  - URTICARIA [None]
  - RASH [None]
  - PRURITUS [None]
